FAERS Safety Report 18235233 (Version 1)
Quarter: 2020Q3

REPORT INFORMATION
  Report Type: Report from Study
  Country: None (occurrence: US)
  Receive Date: 20200904
  Receipt Date: 20200904
  Transmission Date: 20201103
  Serious: Yes (Other)
  Sender: FDA-Public Use
  Company Number: US-ABBVIE-20K-163-3548459-00

PATIENT
  Sex: Female

DRUGS (1)
  1. HUMIRA [Suspect]
     Active Substance: ADALIMUMAB
     Indication: CROHN^S DISEASE
     Dosage: CITRATE FREE
     Route: 058

REACTIONS (9)
  - Duodenogastric reflux [Unknown]
  - Unevaluable event [Unknown]
  - Maternal exposure during pregnancy [Unknown]
  - Myalgia [Unknown]
  - Surgery [Unknown]
  - Arthralgia [Unknown]
  - Ectopic pregnancy [Unknown]
  - Scoliosis [Unknown]
  - Spinal pain [Unknown]
